FAERS Safety Report 6791189-8 (Version None)
Quarter: 2010Q2

REPORT INFORMATION
  Report Type: 
  Country: None (occurrence: None)
  Receive Date: 20100624
  Receipt Date: 20100615
  Transmission Date: 20101027
  Serious: Yes (Other)
  Sender: FDA-Public Use
  Company Number: US-BAXTER-2010BH016166

PATIENT

DRUGS (2)
  1. MILRINONE [Suspect]
     Indication: DRUG USE FOR UNKNOWN INDICATION
     Route: 042
     Dates: start: 20100615
  2. DOPAMINE HCL IN 5% DEXTROSE [Suspect]
     Indication: DRUG USE FOR UNKNOWN INDICATION
     Route: 042
     Dates: start: 20100615

REACTIONS (2)
  - BLOOD PRESSURE DECREASED [None]
  - DEVICE LEAKAGE [None]
